FAERS Safety Report 7766183-0 (Version None)
Quarter: 2011Q3

REPORT INFORMATION
  Report Type: 
  Country: None (occurrence: None)
  Receive Date: 20110921
  Receipt Date: 20110912
  Transmission Date: 20111222
  Serious: Yes (Hospitalization, Other)
  Sender: FDA-Public Use
  Company Number: ZA-ASTRAZENECA-2011SE51903

PATIENT
  Age: 13830 Day
  Sex: Male

DRUGS (4)
  1. NEXIUM [Concomitant]
  2. CRESTOR [Suspect]
     Indication: HYPERLIPIDAEMIA
     Route: 048
     Dates: start: 20100101
  3. LIPITOR [Concomitant]
  4. CRESTOR [Suspect]
     Route: 048

REACTIONS (4)
  - MYALGIA [None]
  - GINGIVAL BLEEDING [None]
  - HEPATIC ENZYME INCREASED [None]
  - TENDON INJURY [None]
